FAERS Safety Report 5083246-1 (Version None)
Quarter: 2006Q3

REPORT INFORMATION
  Report Type: 
  Country: None (occurrence: None)
  Receive Date: 20060818
  Receipt Date: 20060801
  Transmission Date: 20061208
  Serious: Yes (Hospitalization)
  Sender: FDA-Public Use
  Company Number: US-AVENTIS-200618170GDDC

PATIENT
  Age: 51 Year
  Sex: Female
  Weight: 90.4 kg

DRUGS (3)
  1. DOCETAXEL [Suspect]
     Indication: NEOPLASM MALIGNANT
     Route: 042
     Dates: start: 20060717, end: 20060717
  2. ERBITUX [Suspect]
     Indication: NEOPLASM MALIGNANT
     Route: 042
     Dates: start: 20060717, end: 20060717
  3. RADIOTHERAPY [Suspect]
     Indication: NEOPLASM MALIGNANT
     Dosage: DOSE: EXTERNAL BEAM, IMRT, 6400 CGY TOTAL DOSE TO DATE
     Dates: end: 20060728

REACTIONS (10)
  - DEHYDRATION [None]
  - ELECTROLYTE IMBALANCE [None]
  - HYPOKALAEMIA [None]
  - HYPOTENSION [None]
  - INFECTION [None]
  - MUCOSAL INFLAMMATION [None]
  - ORAL PAIN [None]
  - PYREXIA [None]
  - SKIN REACTION [None]
  - STOMATITIS [None]
